FAERS Safety Report 18636604 (Version 2)
Quarter: 2021Q2

REPORT INFORMATION
  Report Type: Spontaneous
  Country: US (occurrence: US)
  Receive Date: 20201218
  Receipt Date: 20210414
  Transmission Date: 20210717
  Serious: Yes (Other)
  Sender: FDA-Public Use
  Company Number: US-PURDUE-USA-2020-0179868

PATIENT
  Age: 27 Year
  Sex: Female

DRUGS (2)
  1. OXYCODONE HYDROCHLORIDE (SIMILAR TO NDA 22?272) [Suspect]
     Active Substance: OXYCODONE HYDROCHLORIDE
     Indication: SICKLE CELL ANAEMIA
     Route: 065
  2. OXYCONTIN [Suspect]
     Active Substance: OXYCODONE HYDROCHLORIDE
     Indication: PREGNANCY
     Route: 048

REACTIONS (6)
  - Stillbirth [Unknown]
  - Vaginal haemorrhage [Unknown]
  - Mental disorder [Unknown]
  - Injury [Unknown]
  - Exposure during pregnancy [Unknown]
  - Drug dependence [Unknown]

NARRATIVE: CASE EVENT DATE: 20190730
